FAERS Safety Report 6100073-4 (Version None)
Quarter: 2009Q1

REPORT INFORMATION
  Report Type: 
  Country: None (occurrence: None)
  Receive Date: 20090303
  Receipt Date: 20090225
  Transmission Date: 20090719
  Serious: Yes (Life-Threatening)
  Sender: FDA-Public Use
  Company Number: B0562131A

PATIENT
  Age: 59 Year
  Sex: Male

DRUGS (1)
  1. CLAVULIN [Suspect]
     Indication: COLITIS
     Dosage: 1G PER DAY
     Route: 048
     Dates: start: 20090121, end: 20090121

REACTIONS (3)
  - ILL-DEFINED DISORDER [None]
  - LIP OEDEMA [None]
  - RASH PRURITIC [None]
